FAERS Safety Report 20043181 (Version 1)
Quarter: 2021Q4

REPORT INFORMATION
  Report Type: Other
  Country: US (occurrence: None)
  Receive Date: 20211108
  Receipt Date: 20211108
  Transmission Date: 20220303
  Serious: Yes (Other)
  Sender: FDA-Public Use
  Company Number: US-ROCHE-2949884

PATIENT
  Sex: Male

DRUGS (2)
  1. XELODA [Suspect]
     Active Substance: CAPECITABINE
     Indication: Colon cancer
     Route: 048
  2. XELODA [Suspect]
     Active Substance: CAPECITABINE
     Indication: Metastases to liver
     Route: 048

REACTIONS (1)
  - Neoplasm malignant [Unknown]
